FAERS Safety Report 25073712 (Version 1)
Quarter: 2025Q1

REPORT INFORMATION
  Report Type: Spontaneous
  Country: US (occurrence: None)
  Receive Date: 20250312
  Receipt Date: 20250312
  Transmission Date: 20250409
  Serious: No
  Sender: FDA-CTU
  Company Number: None

PATIENT
  Age: 65 Year
  Sex: Male
  Weight: 85.05 kg

DRUGS (7)
  1. REPATHA [Suspect]
     Active Substance: EVOLOCUMAB
     Indication: Hypercholesterolaemia
     Dates: start: 20170915, end: 20250312
  2. Norpace Disopyramide [Concomitant]
  3. NIACIN [Concomitant]
     Active Substance: NIACIN
  4. EVKEEZA [Concomitant]
     Active Substance: EVINACUMAB-DGNB
  5. ELIQUIS [Concomitant]
     Active Substance: APIXABAN
  6. MONTELUKAST [Concomitant]
     Active Substance: MONTELUKAST
  7. LIVALO [Concomitant]
     Active Substance: PITAVASTATIN CALCIUM

REACTIONS (3)
  - Hypersensitivity [None]
  - Injection site erythema [None]
  - Injection site induration [None]

NARRATIVE: CASE EVENT DATE: 20250301
